FAERS Safety Report 10382499 (Version 11)
Quarter: 2017Q1

REPORT INFORMATION
  Report Type: Report from Study
  Country: US (occurrence: US)
  Receive Date: 20140813
  Receipt Date: 20170130
  Transmission Date: 20170428
  Serious: Yes (Other)
  Sender: FDA-Public Use
  Company Number: US-SA-2014SA087852

PATIENT
  Age: 56 Year
  Sex: Female

DRUGS (2)
  1. AUBAGIO [Suspect]
     Active Substance: TERIFLUNOMIDE
     Indication: MULTIPLE SCLEROSIS
     Route: 048
     Dates: start: 20140609, end: 20140818
  2. AUBAGIO [Suspect]
     Active Substance: TERIFLUNOMIDE
     Indication: MULTIPLE SCLEROSIS
     Route: 048

REACTIONS (18)
  - Asthenia [Not Recovered/Not Resolved]
  - Hyperhidrosis [Unknown]
  - Muscular weakness [Not Recovered/Not Resolved]
  - Impaired work ability [Unknown]
  - Dizziness [Unknown]
  - Fatigue [Unknown]
  - Alopecia [Unknown]
  - Anxiety [Unknown]
  - Stress [Unknown]
  - Peroneal nerve palsy [Not Recovered/Not Resolved]
  - Ligament sprain [Not Recovered/Not Resolved]
  - Paraesthesia [Recovering/Resolving]
  - Dementia [Unknown]
  - Confusional state [Unknown]
  - Fall [Unknown]
  - Pain in extremity [Unknown]
  - Asthenia [Unknown]
  - Paraesthesia [Recovering/Resolving]

NARRATIVE: CASE EVENT DATE: 201406
